FAERS Safety Report 11884757 (Version 1)
Quarter: 2016Q1

REPORT INFORMATION
  Report Type: Spontaneous
  Country: US (occurrence: US)
  Receive Date: 20160104
  Receipt Date: 20160104
  Transmission Date: 20160526
  Serious: Yes (Other)
  Sender: FDA-Public Use
  Company Number: US-BEH-2015057290

PATIENT
  Sex: Male
  Weight: 127 kg

DRUGS (34)
  1. FERREX [Concomitant]
  2. CLONAZEPAM. [Concomitant]
     Active Substance: CLONAZEPAM
  3. OXYGEN. [Concomitant]
     Active Substance: OXYGEN
  4. BACTRIM DS [Concomitant]
     Active Substance: SULFAMETHOXAZOLE\TRIMETHOPRIM
  5. PREDNISONE. [Concomitant]
     Active Substance: PREDNISONE
  6. FENTANYL. [Concomitant]
     Active Substance: FENTANYL
  7. ASPIRIN. [Concomitant]
     Active Substance: ASPIRIN
  8. DIPHENHYDRAMINE. [Concomitant]
     Active Substance: DIPHENHYDRAMINE
  9. POTASSIUM CHLORIDE ER [Concomitant]
     Active Substance: POTASSIUM CHLORIDE
  10. OMEPRAZOLE DR [Concomitant]
     Active Substance: OMEPRAZOLE
  11. ZEMAIRA [Suspect]
     Active Substance: .ALPHA.1-PROTEINASE INHIBITOR HUMAN
     Indication: ASTHMA-CHRONIC OBSTRUCTIVE PULMONARY DISEASE OVERLAP SYNDROME
     Route: 042
     Dates: start: 20100508
  12. SODIUM CHLORIDE. [Concomitant]
     Active Substance: SODIUM CHLORIDE
  13. WARFARIN SODIUM. [Concomitant]
     Active Substance: WARFARIN SODIUM
  14. AMBIEN [Concomitant]
     Active Substance: ZOLPIDEM TARTRATE
  15. LISINOPRIL. [Concomitant]
     Active Substance: LISINOPRIL
  16. MULTIVITAMINS MEN [Concomitant]
  17. LIDOCAINE/PRILOCAINE [Concomitant]
  18. PAXIL [Concomitant]
     Active Substance: PAROXETINE HYDROCHLORIDE
  19. FLUTICASONE PROPIONATE. [Concomitant]
     Active Substance: FLUTICASONE PROPIONATE
  20. ZEMAIRA [Suspect]
     Active Substance: .ALPHA.1-PROTEINASE INHIBITOR HUMAN
     Indication: ASTHMA-CHRONIC OBSTRUCTIVE PULMONARY DISEASE OVERLAP SYNDROME
     Route: 042
     Dates: start: 20100508
  21. VITAMIN D2 [Concomitant]
     Active Substance: ERGOCALCIFEROL
  22. ERYTHROMYCIN. [Concomitant]
     Active Substance: ERYTHROMYCIN
  23. LANTUS [Concomitant]
     Active Substance: INSULIN GLARGINE
  24. HUMALOG [Concomitant]
     Active Substance: INSULIN LISPRO
  25. ELIDEL [Concomitant]
     Active Substance: PIMECROLIMUS
  26. BUDESONIDE. [Concomitant]
     Active Substance: BUDESONIDE
  27. DUONEB [Concomitant]
     Active Substance: ALBUTEROL SULFATE\IPRATROPIUM BROMIDE
  28. CICLOPIROX. [Concomitant]
     Active Substance: CICLOPIROX
  29. GLIPIZIDE XL [Concomitant]
     Active Substance: GLIPIZIDE
  30. EPIPEN [Concomitant]
     Active Substance: EPINEPHRINE
  31. ATIVAN [Concomitant]
     Active Substance: LORAZEPAM
  32. BUMETANIDE. [Concomitant]
     Active Substance: BUMETANIDE
  33. VERAPAMIL ER [Concomitant]
     Active Substance: VERAPAMIL HYDROCHLORIDE
  34. CALCIUM WITH VITAMIN D [Concomitant]
     Active Substance: CALCIUM\VITAMIN D

REACTIONS (1)
  - Staphylococcal infection [Unknown]
